FAERS Safety Report 25552697 (Version 2)
Quarter: 2025Q3

REPORT INFORMATION
  Report Type: Report from Study
  Country: IN (occurrence: IN)
  Receive Date: 20250715
  Receipt Date: 20250801
  Transmission Date: 20251020
  Serious: Yes (Other)
  Sender: CIPLA
  Company Number: IN-CIPLA LTD.-2025IN08390

PATIENT

DRUGS (5)
  1. ATORVASTATIN [Suspect]
     Active Substance: ATORVASTATIN
     Indication: Product used for unknown indication
     Dosage: 10 MILLIGRAM, QD
     Route: 048
  2. TELMIKIND [Concomitant]
     Indication: Product used for unknown indication
     Route: 065
  3. DROTIKIND [Concomitant]
     Indication: Product used for unknown indication
     Route: 065
  4. PAN D [DOMPERIDONE;PANTOPRAZOLE] [Concomitant]
     Indication: Product used for unknown indication
     Route: 065
  5. GEOVIN [MAGNESIUM CITRATE;POTASSIUM CITRATE;PYRIDOXINE HYDROCHLORIDE] [Concomitant]
     Indication: Product used for unknown indication
     Route: 065

REACTIONS (8)
  - Nephrolithiasis [Recovering/Resolving]
  - Calculus urinary [Recovering/Resolving]
  - Uterine disorder [Recovering/Resolving]
  - Cholelithiasis [Recovering/Resolving]
  - Feeling abnormal [Recovering/Resolving]
  - Infection [Recovering/Resolving]
  - Abdominal pain upper [Recovering/Resolving]
  - Pyrexia [Recovering/Resolving]

NARRATIVE: CASE EVENT DATE: 20250601
